FAERS Safety Report 24882870 (Version 1)
Quarter: 2025Q1

REPORT INFORMATION
  Report Type: Spontaneous
  Country: CN (occurrence: CN)
  Receive Date: 20250124
  Receipt Date: 20250124
  Transmission Date: 20250409
  Serious: Yes (Hospitalization)
  Sender: ABBVIE
  Company Number: CN-ABBVIE-6097124

PATIENT
  Age: 73 Year
  Sex: Female
  Weight: 76 kg

DRUGS (3)
  1. UPADACITINIB [Suspect]
     Active Substance: UPADACITINIB
     Indication: Dermatomyositis
     Dosage: 15 MILLIGRAM TWICE DAILY
     Route: 048
     Dates: start: 20250113, end: 20250116
  2. UPADACITINIB [Suspect]
     Active Substance: UPADACITINIB
     Indication: Dermatomyositis
     Dosage: 5 MILLIGRAM TWICE DAILY
     Route: 048
     Dates: start: 202501
  3. VORICONAZOLE [Suspect]
     Active Substance: VORICONAZOLE
     Indication: Bronchopulmonary aspergillosis
     Dosage: 0.2 GRAM
     Route: 041
     Dates: start: 20250114, end: 20250114

REACTIONS (3)
  - Haemoglobin decreased [Recovering/Resolving]
  - White blood cell count decreased [Recovering/Resolving]
  - Neutropenia [Recovering/Resolving]

NARRATIVE: CASE EVENT DATE: 20250114
